FAERS Safety Report 21712465 (Version 2)
Quarter: 2022Q4

REPORT INFORMATION
  Report Type: Spontaneous
  Country: US (occurrence: US)
  Receive Date: 20221212
  Receipt Date: 20221218
  Transmission Date: 20230112
  Serious: No
  Sender: FDA-Public Use
  Company Number: US-JNJFOC-20221208638

PATIENT
  Age: 78 Year
  Sex: Male
  Weight: 69.916 kg

DRUGS (1)
  1. DARZALEX [Suspect]
     Active Substance: DARATUMUMAB
     Indication: Plasma cell myeloma
     Route: 065
     Dates: start: 202011

REACTIONS (4)
  - Product dose omission issue [Unknown]
  - Adverse event [Unknown]
  - Medication error [Unknown]
  - COVID-19 [Unknown]

NARRATIVE: CASE EVENT DATE: 20220926
